FAERS Safety Report 5474954-9 (Version None)
Quarter: 2007Q4

REPORT INFORMATION
  Report Type: 
  Country: None (occurrence: None)
  Receive Date: 20071002
  Receipt Date: 20070921
  Transmission Date: 20080405
  Serious: Yes (Hospitalization, Other)
  Sender: FDA-Public Use
  Company Number: US-ROCHE-502782

PATIENT
  Age: 44 Year
  Sex: Female

DRUGS (11)
  1. PEGASYS [Suspect]
     Route: 065
     Dates: start: 20070523
  2. RIBAVIRIN [Suspect]
     Route: 065
     Dates: start: 20070523, end: 20070614
  3. RIBAVIRIN [Suspect]
     Route: 065
     Dates: start: 20070614
  4. XANAX [Concomitant]
     Indication: ANXIETY
  5. ATENOLOL [Concomitant]
     Indication: HYPERTENSION
  6. IMITREX [Concomitant]
  7. EXCEDRIN (MIGRAINE) [Concomitant]
  8. ALKA SELTZER [Concomitant]
  9. UNSPECIFIED DRUG [Concomitant]
     Dosage: REPORTED AS 'DAYTIME AND NIGHTTIME COLD MEDICINE'.
  10. PEPTO BISMOL [Concomitant]
  11. MUSCLE RELAXANT [Concomitant]
     Dosage: REPORTED INDICATION 'PAINS TO KNEES AND ANKLES'.

REACTIONS (29)
  - ABDOMINAL PAIN UPPER [None]
  - ANAEMIA [None]
  - ARTHRALGIA [None]
  - ASTHENIA [None]
  - BACK PAIN [None]
  - BLOOD URINE PRESENT [None]
  - BRONCHITIS [None]
  - CONSTIPATION [None]
  - DIARRHOEA [None]
  - DIZZINESS [None]
  - DYSPNOEA [None]
  - EYE INFLAMMATION [None]
  - FAECES DISCOLOURED [None]
  - FEEDING DISORDER [None]
  - HYPOAESTHESIA [None]
  - INFLUENZA LIKE ILLNESS [None]
  - INJECTION SITE BRUISING [None]
  - INJECTION SITE ERYTHEMA [None]
  - INJECTION SITE RASH [None]
  - MUSCLE SPASMS [None]
  - NASAL CONGESTION [None]
  - NAUSEA [None]
  - PANIC ATTACK [None]
  - PAROSMIA [None]
  - PHARYNGOLARYNGEAL PAIN [None]
  - PRODUCTIVE COUGH [None]
  - PYREXIA [None]
  - SKIN LESION [None]
  - VOMITING [None]
